FAERS Safety Report 5757399-3 (Version None)
Quarter: 2008Q2

REPORT INFORMATION
  Report Type: 
  Country: None (occurrence: None)
  Receive Date: 20080603
  Receipt Date: 20080528
  Transmission Date: 20081010
  Serious: Yes (Hospitalization)
  Sender: FDA-Public Use
  Company Number: ES-AVENTIS-200814975GDDC

PATIENT
  Age: 77 Year
  Sex: Male

DRUGS (3)
  1. DOCETAXEL [Suspect]
     Indication: PROSTATE CANCER
     Route: 042
     Dates: start: 20080418, end: 20080418
  2. PREDNISONE TAB [Suspect]
     Route: 048
     Dates: start: 20080418
  3. MONOCLONAL ANTIBODIES [Suspect]
     Indication: PROSTATE CANCER
     Route: 042
     Dates: start: 20080418, end: 20080418

REACTIONS (1)
  - HYPERGLYCAEMIA [None]
